FAERS Safety Report 17787328 (Version 13)
Quarter: 2021Q4

REPORT INFORMATION
  Report Type: Spontaneous
  Country: US (occurrence: US)
  Receive Date: 20200514
  Receipt Date: 20211230
  Transmission Date: 20220304
  Serious: Yes (Hospitalization, Other)
  Sender: FDA-Public Use
  Company Number: US-BIOCODEX2-202000475

PATIENT

DRUGS (19)
  1. DIACOMIT [Suspect]
     Active Substance: STIRIPENTOL
     Indication: Epilepsy
     Dosage: 2 TABLETS OF 500 MG DAILY
     Route: 065
  2. DIACOMIT [Suspect]
     Active Substance: STIRIPENTOL
     Dosage: 1500MG TWICE DAILY
     Route: 065
     Dates: start: 20200124
  3. DIACOMIT [Suspect]
     Active Substance: STIRIPENTOL
     Dosage: 1500MG THREE TIME DAILY
     Route: 065
  4. DIACOMIT [Suspect]
     Active Substance: STIRIPENTOL
     Dosage: 500MG TWICE DAILY
     Route: 065
  5. DIACOMIT [Suspect]
     Active Substance: STIRIPENTOL
     Dosage: 500MG TWICE DAILY
     Route: 065
  6. DIACOMIT [Suspect]
     Active Substance: STIRIPENTOL
     Dosage: 500MG, TWICE DAILY.
     Route: 065
     Dates: start: 20200123
  7. DIACOMIT [Suspect]
     Active Substance: STIRIPENTOL
     Dosage: 500MG, 3 CAPSULES TWICE A DAY.
     Route: 048
  8. DIACOMIT [Suspect]
     Active Substance: STIRIPENTOL
     Dosage: 500MG, 3 CAPSULES TWICE A DAY.
     Route: 048
  9. DIACOMIT [Suspect]
     Active Substance: STIRIPENTOL
     Dosage: 1500 MG IN THE MORNING AND 1000 MG AT NIGHT
     Route: 048
  10. CLOBAZAM [Concomitant]
     Active Substance: CLOBAZAM
     Indication: Product used for unknown indication
     Route: 065
  11. ONFI [Concomitant]
     Active Substance: CLOBAZAM
     Indication: Product used for unknown indication
     Route: 065
  12. CHOLECALCIFEROL [Concomitant]
     Active Substance: CHOLECALCIFEROL
     Indication: Product used for unknown indication
     Route: 065
  13. KEPPRA [Concomitant]
     Active Substance: LEVETIRACETAM
     Indication: Product used for unknown indication
     Route: 065
  14. LAMOTRIGINE [Concomitant]
     Active Substance: LAMOTRIGINE
     Indication: Product used for unknown indication
     Route: 065
  15. LORAZEPAM [Concomitant]
     Active Substance: LORAZEPAM
     Indication: Product used for unknown indication
     Dosage: UNK
     Route: 065
  16. NEXPLANON [Concomitant]
     Active Substance: ETONOGESTREL
     Indication: Product used for unknown indication
     Route: 065
  17. SODIUM BICARBONATE [Concomitant]
     Active Substance: SODIUM BICARBONATE
     Indication: Product used for unknown indication
     Dosage: 650 MG THREE TIMES A DAY
     Route: 065
  18. TOPAMAX [Concomitant]
     Active Substance: TOPIRAMATE
     Indication: Product used for unknown indication
     Route: 065
  19. TOPIRAMATE [Concomitant]
     Active Substance: TOPIRAMATE
     Indication: Product used for unknown indication
     Route: 065

REACTIONS (11)
  - Seizure [Unknown]
  - Coma [Unknown]
  - Syncope [Unknown]
  - Head injury [Unknown]
  - Hypersomnia [Unknown]
  - Skin odour abnormal [Unknown]
  - Fatigue [Unknown]
  - Decreased appetite [Unknown]
  - Somnolence [Unknown]
  - Product dose omission issue [Unknown]
  - Product use in unapproved indication [Unknown]

NARRATIVE: CASE EVENT DATE: 20210101
